FAERS Safety Report 17720281 (Version 1)
Quarter: 2020Q2

REPORT INFORMATION
  Report Type: Spontaneous
  Country: CN (occurrence: CN)
  Receive Date: 20200428
  Receipt Date: 20200428
  Transmission Date: 20200714
  Serious: Yes (Other)
  Sender: FDA-Public Use
  Company Number: CN-BRACCO-2020CN01737

PATIENT
  Age: 24 Year
  Sex: Female

DRUGS (2)
  1. SONOVUE [Suspect]
     Active Substance: SULFUR HEXAFLUORIDE
     Indication: ULTRASOUND THYROID
     Dosage: 1 ML, SINGLE, AT 16:20
     Route: 042
     Dates: start: 20200414, end: 20200414
  2. SONOVUE [Suspect]
     Active Substance: SULFUR HEXAFLUORIDE
     Indication: ULTRASOUND THYROID
     Dosage: 1 ML, SINGLE, AT 16:30
     Route: 042
     Dates: start: 20200414, end: 20200414

REACTIONS (4)
  - Abdominal pain [Recovered/Resolved]
  - Hypersensitivity [Recovered/Resolved]
  - Dizziness [Recovered/Resolved]
  - Off label use [Recovered/Resolved]

NARRATIVE: CASE EVENT DATE: 20200414
